FAERS Safety Report 8291595-9 (Version None)
Quarter: 2012Q2

REPORT INFORMATION
  Report Type: 
  Country: None (occurrence: None)
  Receive Date: 20120417
  Receipt Date: 20120405
  Transmission Date: 20120825
  Serious: Yes (Other)
  Sender: FDA-Public Use
  Company Number: US-JNJFOC-20120309825

PATIENT
  Sex: Female
  Weight: 94.8 kg

DRUGS (3)
  1. REMICADE [Suspect]
     Route: 042
     Dates: start: 20100817
  2. REMICADE [Suspect]
     Indication: CROHN'S DISEASE
     Route: 042
     Dates: end: 20120215
  3. IMURAN [Concomitant]
     Route: 065
     Dates: start: 20070101

REACTIONS (3)
  - ARTHRITIS [None]
  - GASTROINTESTINAL DISORDER [None]
  - LUPUS-LIKE SYNDROME [None]
